FAERS Safety Report 6572514-X (Version None)
Quarter: 2010Q1

REPORT INFORMATION
  Report Type: 
  Country: None (occurrence: None)
  Receive Date: 20100119
  Receipt Date: 20100111
  Transmission Date: 20100710
  Serious: Yes (Other)
  Sender: FDA-Public Use
  Company Number: AEUSA201000010

PATIENT
  Sex: Female

DRUGS (1)
  1. GAMASTAN [Suspect]
     Indication: IMMUNODEFICIENCY COMMON VARIABLE
     Dosage: IM
     Route: 030
     Dates: start: 20040101

REACTIONS (2)
  - JOINT SWELLING [None]
  - SEPSIS [None]
